FAERS Safety Report 5937554-X (Version None)
Quarter: 2008Q4

REPORT INFORMATION
  Report Type: 
  Country: None (occurrence: None)
  Receive Date: 20081031
  Receipt Date: 20081027
  Transmission Date: 20090506
  Serious: Yes (Death, Life-Threatening, Hospitalization)
  Sender: FDA-Public Use
  Company Number: DE-BAYER-200710674BVD

PATIENT
  Age: 73 Year
  Sex: Female
  Weight: 68 kg

DRUGS (11)
  1. SORAFENIB [Suspect]
     Indication: HEPATIC NEOPLASM MALIGNANT
     Dosage: TOTAL DAILY DOSE: 800 MG
     Route: 048
     Dates: start: 20070510, end: 20070605
  2. PLACEBO TO SORAFENIB [Suspect]
     Indication: HEPATIC NEOPLASM MALIGNANT
     Route: 048
     Dates: end: 20060825
  3. BISOPROLOL FUMARATE [Concomitant]
     Route: 065
  4. RANITIDINE HCL [Concomitant]
     Route: 065
  5. OSSOFORTIN PLUS [Concomitant]
     Route: 065
  6. INDOMETHACIN [Concomitant]
     Route: 065
  7. NEXIUM [Concomitant]
     Route: 065
  8. PANTOZOL [Concomitant]
     Route: 065
     Dates: start: 20060101
  9. FENTANYL [Concomitant]
     Route: 065
     Dates: start: 20060101
  10. METOCLOPRAMIDE [Concomitant]
     Route: 048
     Dates: start: 20060101
  11. LACTULOSE [Concomitant]
     Route: 065
     Dates: start: 20050101

REACTIONS (1)
  - HEPATIC NEOPLASM MALIGNANT [None]
